FAERS Safety Report 6929143-5 (Version None)
Quarter: 2010Q3

REPORT INFORMATION
  Report Type: 
  Country: None (occurrence: None)
  Receive Date: 20100817
  Receipt Date: 20100813
  Transmission Date: 20110219
  Serious: Yes (Hospitalization)
  Sender: FDA-Public Use
  Company Number: DE-MERCK-1008DEU00048

PATIENT
  Age: 60 Year
  Sex: Male

DRUGS (1)
  1. JANUMET [Suspect]
     Indication: DIABETES MELLITUS
     Route: 048
     Dates: start: 20090101, end: 20100806

REACTIONS (7)
  - DIARRHOEA [None]
  - FEELING COLD [None]
  - HYPERSOMNIA [None]
  - NAUSEA [None]
  - PYREXIA [None]
  - VOMITING [None]
  - WEIGHT DECREASED [None]
